FAERS Safety Report 9836145 (Version 4)
Quarter: 2014Q1

REPORT INFORMATION
  Report Type: Report from Study
  Country: CO (occurrence: CO)
  Receive Date: 20140123
  Receipt Date: 20140314
  Transmission Date: 20141002
  Serious: Yes (Other)
  Sender: FDA-Public Use
  Company Number: CO-AMGEN-COLCT2013091904

PATIENT
  Age: 39 Year
  Sex: Female
  Weight: 61 kg

DRUGS (6)
  1. ETANERCEPT [Suspect]
     Indication: PRODUCT USED FOR UNKNOWN INDICATION
     Dosage: 50 MG, WEEKLY
     Route: 065
     Dates: start: 20110301, end: 201104
  2. METHOTREXATE                       /00113802/ [Concomitant]
     Indication: RHEUMATOID ARTHRITIS
     Dosage: 2.5 MG, 5 TABLETS PER WEEK
     Route: 048
     Dates: start: 2010
  3. CALCIUM CARBONATE W/VITAMIN D NOS [Concomitant]
     Dosage: CALCIUM CARBONATE + 600 MG + VITAMIN D 200 IU (1-0-0)
  4. ACETAMINOPHEN [Concomitant]
     Indication: PAIN
     Dosage: 500 MG, UNK
     Route: 048
     Dates: start: 2010
  5. LEFLUNOMIDE [Concomitant]
     Indication: RHEUMATOID ARTHRITIS
     Dosage: 20 MG, UNK
     Route: 048
     Dates: start: 20111121
  6. PREDNISOLON                        /00016201/ [Concomitant]
     Indication: RHEUMATOID ARTHRITIS
     Dosage: 50 MG, UNK
     Route: 048
     Dates: start: 2010

REACTIONS (4)
  - Acute respiratory failure [Recovered/Resolved]
  - Nausea [Not Recovered/Not Resolved]
  - Vomiting [Not Recovered/Not Resolved]
  - Diarrhoea [Not Recovered/Not Resolved]
